FAERS Safety Report 23521804 (Version 2)
Quarter: 2024Q1

REPORT INFORMATION
  Report Type: Spontaneous
  Country: AR (occurrence: AR)
  Receive Date: 20240214
  Receipt Date: 20240220
  Transmission Date: 20240410
  Serious: Yes (Other)
  Sender: FDA-Public Use
  Company Number: AR-MYLANLABS-2023M1121968

PATIENT
  Age: 59 Year
  Sex: Female

DRUGS (1)
  1. CLOZAPINE [Suspect]
     Active Substance: CLOZAPINE
     Indication: Product used for unknown indication
     Dosage: UNK
     Route: 065
     Dates: start: 19950509

REACTIONS (8)
  - Neutropenia [Recovered/Resolved]
  - Leukocytosis [Recovered/Resolved]
  - Lymphocyte count increased [Recovered/Resolved]
  - Red blood cell count decreased [Unknown]
  - Haematocrit decreased [Recovered/Resolved]
  - Haemoglobin decreased [Unknown]
  - Mean cell volume decreased [Recovered/Resolved]
  - Mean cell haemoglobin decreased [Unknown]

NARRATIVE: CASE EVENT DATE: 20231107
